FAERS Safety Report 11750582 (Version 1)
Quarter: 2015Q4

REPORT INFORMATION
  Report Type: Spontaneous
  Country: US (occurrence: US)
  Receive Date: 20151118
  Receipt Date: 20151118
  Transmission Date: 20160304
  Serious: No
  Sender: FDA-Public Use
  Company Number: US-EISAI MEDICAL RESEARCH-EC-2015-012006

PATIENT
  Age: 69 Year
  Sex: Female

DRUGS (1)
  1. ERIBULIN [Suspect]
     Active Substance: ERIBULIN
     Indication: BREAST CANCER METASTATIC
     Dosage: UNKNOWN
     Route: 041
     Dates: start: 201112, end: 201407

REACTIONS (2)
  - Neuropathy peripheral [Unknown]
  - Neutropenia [Unknown]

NARRATIVE: CASE EVENT DATE: 201407
